FAERS Safety Report 17213834 (Version 1)
Quarter: 2020Q1

REPORT INFORMATION
  Report Type: Spontaneous
  Country: US (occurrence: US)
  Receive Date: 20191227
  Receipt Date: 20191227
  Transmission Date: 20200409
  Serious: Yes (Other)
  Sender: FDA-Public Use
  Company Number: None

PATIENT
  Age: 45 Year
  Sex: Female
  Weight: 74.25 kg

DRUGS (12)
  1. PRILOSEC ETC., [Concomitant]
  2. BLACK TEA [Concomitant]
  3. BUNESONIDE SLURRY FOR EOE [Concomitant]
  4. AMOXICILLAN-CLAV 875-125MG TAB [Suspect]
     Active Substance: AMOXICILLIN\CLAVULANATE POTASSIUM
     Indication: BRONCHITIS
     Dosage: ?          QUANTITY:20 TABLET(S);?
     Route: 048
     Dates: start: 20191202, end: 20191211
  5. NICOLA ORIGINAL COUGH DROPS [Concomitant]
  6. CALCIUM [Concomitant]
     Active Substance: CALCIUM
  7. VITAMINS [Concomitant]
     Active Substance: VITAMINS
  8. DUONEBS AT NIGHT [Concomitant]
  9. VITAMIN D [Concomitant]
     Active Substance: VITAMIN D NOS
  10. A BRAND NEW CLEAN HUMIDIFIER [Concomitant]
  11. MAGNESIUM [Concomitant]
     Active Substance: MAGNESIUM
  12. ZINC. [Concomitant]
     Active Substance: ZINC

REACTIONS (3)
  - Chromaturia [None]
  - Abdominal pain upper [None]
  - Liver injury [None]

NARRATIVE: CASE EVENT DATE: 20191215
